FAERS Safety Report 9174336 (Version 3)
Quarter: 2013Q3

REPORT INFORMATION
  Report Type: Report from Study
  Country: DE (occurrence: DE)
  Receive Date: 20130320
  Receipt Date: 20130906
  Transmission Date: 20140515
  Serious: Yes (Other)
  Sender: FDA-Public Use
  Company Number: PHHY2013DE025953

PATIENT
  Sex: Female

DRUGS (3)
  1. DESFERAL [Suspect]
     Dosage: 0.5 G /D
     Route: 064
     Dates: start: 201211
  2. DESFERAL [Suspect]
     Dosage: 2.5 G/ 68 KG
     Route: 064
     Dates: start: 201302
  3. EXJADE [Suspect]
     Indication: IRON OVERLOAD
     Dosage: 2000 MG/ 70 KG
     Route: 064
     Dates: start: 2006, end: 201206

REACTIONS (2)
  - Thalassaemia beta [Unknown]
  - Foetal exposure during pregnancy [Unknown]
